FAERS Safety Report 21173766 (Version 1)
Quarter: 2022Q3

REPORT INFORMATION
  Report Type: Spontaneous
  Country: US (occurrence: US)
  Receive Date: 20220804
  Receipt Date: 20220804
  Transmission Date: 20221027
  Serious: No
  Sender: FDA-Public Use
  Company Number: US-PERRIGO-22US002994

PATIENT
  Age: 78 Year
  Sex: Male
  Weight: 75.737 kg

DRUGS (2)
  1. LORATADINE [Suspect]
     Active Substance: LORATADINE
     Indication: Nasal congestion
     Dosage: 10 MG, SINGLE
     Route: 048
     Dates: start: 20220219, end: 20220219
  2. LORATADINE [Suspect]
     Active Substance: LORATADINE
     Indication: Upper-airway cough syndrome
     Dosage: 10 MG, SINGLE
     Route: 048
     Dates: start: 20220221, end: 20220221

REACTIONS (5)
  - Anxiety [Not Recovered/Not Resolved]
  - Nervousness [Not Recovered/Not Resolved]
  - Chest discomfort [Not Recovered/Not Resolved]
  - Heart rate increased [Not Recovered/Not Resolved]
  - Off label use [Recovered/Resolved]

NARRATIVE: CASE EVENT DATE: 20220219
